FAERS Safety Report 7986439-6 (Version None)
Quarter: 2011Q4

REPORT INFORMATION
  Report Type: 
  Country: None (occurrence: None)
  Receive Date: 20111216
  Receipt Date: 20110712
  Transmission Date: 20120403
  Serious: No
  Sender: FDA-Public Use
  Company Number: US-BRISTOL-MYERS SQUIBB COMPANY-15896491

PATIENT
  Age: 42 Year
  Sex: Female

DRUGS (6)
  1. GEODON [Suspect]
  2. ABILIFY [Suspect]
  3. LAMICTAL [Suspect]
  4. CYMBALTA [Suspect]
  5. ADDERALL 5 [Concomitant]
  6. KLONOPIN [Concomitant]

REACTIONS (1)
  - WEIGHT INCREASED [None]
